FAERS Safety Report 9698602 (Version 2)
Quarter: 2013Q4

REPORT INFORMATION
  Report Type: Spontaneous
  Country: ES (occurrence: ES)
  Receive Date: 20131120
  Receipt Date: 20131202
  Transmission Date: 20140711
  Serious: Yes (Other)
  Sender: FDA-Public Use
  Company Number: ES-PFIZER INC-2013327358

PATIENT
  Age: 81 Year
  Sex: Female

DRUGS (4)
  1. TOVIAZ [Suspect]
     Indication: URINARY INCONTINENCE
     Dosage: 4 MG, UNK
     Dates: start: 201310, end: 201311
  2. CLOPIDOGREL [Concomitant]
     Dosage: UNK
  3. OMEPRAZOL [Concomitant]
     Dosage: UNK
  4. ESCITALOPRAM [Concomitant]
     Dosage: UNK

REACTIONS (1)
  - Tongue oedema [Recovered/Resolved]
